FAERS Safety Report 8176963-8 (Version None)
Quarter: 2012Q1

REPORT INFORMATION
  Report Type: 
  Country: None (occurrence: None)
  Receive Date: 20120301
  Receipt Date: 20120228
  Transmission Date: 20120608
  Serious: Yes (Congenital Anomaly, Other)
  Sender: FDA-Public Use
  Company Number: US-PFIZER INC-2011308682

PATIENT
  Sex: Male
  Weight: 3.33 kg

DRUGS (6)
  1. ZOLOFT [Suspect]
     Indication: ANXIETY
     Dosage: 50 MG, DAILY FOR ONE WEEK
     Route: 064
     Dates: start: 20080821, end: 20080801
  2. SERTRALINE HYDROCHLORIDE [Suspect]
     Dosage: 100 MG, UNK
     Route: 064
     Dates: start: 20070531
  3. ZOLOFT [Suspect]
     Indication: AFFECTIVE DISORDER
     Dosage: 100 MG, DAILY
     Route: 064
     Dates: start: 20080801
  4. ZOLOFT [Suspect]
     Indication: DEPRESSION
     Dosage: 100 MG, DAILY
     Route: 064
  5. MULTI-VITAMINS [Concomitant]
     Dosage: ONCE DAILY
     Route: 064
  6. AMPICILLIN [Concomitant]
     Indication: URINARY TRACT INFECTION
     Dosage: 250 MG, 4X/DAY FOR THREE DAYS
     Route: 064
     Dates: start: 20080612, end: 20080601

REACTIONS (7)
  - ATRIAL SEPTAL DEFECT [None]
  - RIGHT VENTRICULAR HYPERTROPHY [None]
  - MATERNAL EXPOSURE TIMING UNSPECIFIED [None]
  - PATENT DUCTUS ARTERIOSUS [None]
  - PULMONARY VALVE STENOSIS [None]
  - PULMONARY ARTERY DILATATION [None]
  - PULMONARY VALVE INCOMPETENCE [None]
